FAERS Safety Report 8789346 (Version 2)
Quarter: 2013Q1

REPORT INFORMATION
  Report Type: Spontaneous
  Country: BR (occurrence: None)
  Receive Date: 20120905
  Receipt Date: 20121109
  Transmission Date: 20140127
  Serious: Yes (Hospitalization)
  Sender: FDA-Public Use
  Company Number: DSU-2012-06894

PATIENT
  Age: 72 Year
  Sex: Female
  Weight: 66 kg

DRUGS (4)
  1. BENICAR HCT [Suspect]
     Indication: HYPERTENSION
     Dosage: 10/12.5 MG
     Route: 048
     Dates: end: 201203
  2. CRESTOR [Suspect]
     Indication: BLOOD CHOLESTEROL INCREASED
     Route: 048
     Dates: end: 201203
  3. SYNTHROID (LEVOTHYROXINE SODIUM) [Concomitant]
  4. DIGEPLUS (DEHYDROCHOLIC ACID, METOCLOPRAMIDE HYDROCHLORIDE, PANCREATIN, PEPSIN DIMETICONE, CELLULASE) [Concomitant]

REACTIONS (3)
  - Blood cholesterol increased [None]
  - Angina pectoris [None]
  - Malaise [None]
